FAERS Safety Report 8017085-6 (Version None)
Quarter: 2012Q2

REPORT INFORMATION
  Report Type: 
  Country: None (occurrence: None)
  Receive Date: 20120102
  Receipt Date: 20111229
  Transmission Date: 20120825
  Serious: Yes (Death, Hospitalization, Other)
  Sender: FDA-Public Use
  Company Number: PHEH2007US03601

PATIENT
  Sex: Female
  Weight: 61.678 kg

DRUGS (38)
  1. RADIATION THERAPY [Concomitant]
  2. DECADRON [Concomitant]
     Dosage: 10 MG
  3. ROCEPHIN [Concomitant]
     Dosage: 4 GM
     Route: 042
  4. MORPHINE SULFATE [Concomitant]
     Dosage: 30 MG  / PRN
  5. VITAMIN TAB [Concomitant]
  6. LISINOPRIL [Concomitant]
  7. PROTONIX [Concomitant]
  8. DOXIL [Suspect]
  9. RED BLOOD CELLS [Concomitant]
  10. ZOLOFT [Concomitant]
  11. ALOXI [Concomitant]
  12. TAXOTERE [Concomitant]
     Dosage: 50 MG
  13. ASPIRIN [Concomitant]
     Dosage: UNK / QD
  14. NAVELBINE [Concomitant]
     Dosage: 40 MG
  15. MORPHINE [Concomitant]
  16. CHEMOTHERAPEUTICS NOS [Concomitant]
  17. LETROZOLE [Concomitant]
     Dosage: 2.5 MG
  18. MS CONTIN [Concomitant]
     Dosage: 100 MG, BID
  19. BENADRYL ^ACHE^ [Concomitant]
     Dosage: 25 MG
  20. ZOFRAN [Concomitant]
     Dosage: 32 MG
  21. LORTAB [Concomitant]
  22. SENOKOT                                 /UNK/ [Concomitant]
     Dosage: UNK / 2 TABLETES Q12 PRN
  23. DEXAMETHASONE [Concomitant]
     Dosage: 10 MG
  24. ZOMETA [Suspect]
     Indication: BREAST CANCER
     Dosage: 4 MG, UNK
  25. PROCRIT                            /00909301/ [Concomitant]
     Dosage: 40,000 UNITS
  26. PREDNISONE [Concomitant]
     Dosage: 20 MG, UNK
  27. ANZEMET [Concomitant]
     Dosage: 120  MG
  28. AREDIA [Suspect]
     Dosage: 90 MG, UNK
     Dates: start: 20020304
  29. TAMOXIFEN CITRATE [Concomitant]
  30. NEURONTIN [Concomitant]
     Dosage: 300 MG, UNK
  31. FEMARA [Concomitant]
     Dosage: 2.5 MG, UNK
  32. FASLODEX [Concomitant]
     Dosage: 250 MG
  33. COMPAZINE [Concomitant]
     Dosage: 10 MG / Q6 PRN
  34. GABAPENTIN [Concomitant]
     Dosage: 300 MG, QHS
  35. CEPHALEXIN [Concomitant]
     Dosage: 500 MG, UNK
  36. ARANESP [Concomitant]
     Indication: ANAEMIA
     Dosage: 100 MCG
  37. PREVACID [Concomitant]
  38. SIMVASTATIN [Concomitant]

REACTIONS (85)
  - BONE LOSS [None]
  - HYPOPHAGIA [None]
  - ASPIRATION PLEURAL CAVITY [None]
  - ARTHROPATHY [None]
  - HYPOAESTHESIA [None]
  - DECREASED APPETITE [None]
  - HAND-FOOT-AND-MOUTH DISEASE [None]
  - GASTROOESOPHAGEAL REFLUX DISEASE [None]
  - CONSTIPATION [None]
  - FLUID RETENTION [None]
  - FACET JOINT SYNDROME [None]
  - HAEMOGLOBIN DECREASED [None]
  - HIATUS HERNIA [None]
  - NECK PAIN [None]
  - ANXIETY [None]
  - DEHYDRATION [None]
  - WEIGHT DECREASED [None]
  - FAECES DISCOLOURED [None]
  - MALAISE [None]
  - ARTERIOSCLEROSIS [None]
  - HAEMOPTYSIS [None]
  - CARDIOTOXICITY [None]
  - CARPAL TUNNEL SYNDROME [None]
  - HYPERCHOLESTEROLAEMIA [None]
  - CERVICAL SPINAL STENOSIS [None]
  - OSTEONECROSIS OF JAW [None]
  - DECREASED INTEREST [None]
  - DEPRESSED MOOD [None]
  - PNEUMONIA [None]
  - BRAIN CANCER METASTATIC [None]
  - HAEMORRHOIDS [None]
  - RADICULOPATHY [None]
  - CATARACT [None]
  - BONE DISORDER [None]
  - DISCOMFORT [None]
  - PLEURAL EFFUSION [None]
  - FATIGUE [None]
  - SEBORRHOEIC KERATOSIS [None]
  - HYPERTENSION [None]
  - BONE NEOPLASM MALIGNANT [None]
  - ADENOMA BENIGN [None]
  - ATELECTASIS [None]
  - MYOFASCIAL PAIN SYNDROME [None]
  - DEATH [None]
  - INFECTION [None]
  - OSTEOPOROSIS [None]
  - ANAEMIA [None]
  - NAUSEA [None]
  - MOUTH ULCERATION [None]
  - SCOLIOSIS [None]
  - CHEST DISCOMFORT [None]
  - CHEST PAIN [None]
  - LUNG INFILTRATION [None]
  - SPINAL OSTEOARTHRITIS [None]
  - SPONDYLITIC MYELOPATHY [None]
  - PHOTOPHOBIA [None]
  - VITREOUS FLOATERS [None]
  - DEFORMITY [None]
  - GENERAL PHYSICAL HEALTH DETERIORATION [None]
  - POLYARTHRITIS [None]
  - HEPATIC CANCER METASTATIC [None]
  - FEMUR FRACTURE [None]
  - LUNG HYPERINFLATION [None]
  - EMOTIONAL DISTRESS [None]
  - HYPOAESTHESIA ORAL [None]
  - ARTHRALGIA [None]
  - RESPIRATORY DISTRESS [None]
  - BONE LESION [None]
  - RENAL CYST [None]
  - RECTAL HAEMORRHAGE [None]
  - BRONCHITIS [None]
  - ASTHENIA [None]
  - LUNG NEOPLASM [None]
  - DYSPNOEA [None]
  - PAIN [None]
  - PARAESTHESIA [None]
  - VISION BLURRED [None]
  - LIBIDO DECREASED [None]
  - POLYP [None]
  - HIP FRACTURE [None]
  - MELAENA [None]
  - METASTASES TO BONE [None]
  - BACK PAIN [None]
  - BARRETT'S OESOPHAGUS [None]
  - LYMPHADENOPATHY [None]
